FAERS Safety Report 9325160 (Version 1)
Quarter: 2013Q2

REPORT INFORMATION
  Report Type: Spontaneous
  Country: US (occurrence: US)
  Receive Date: 20130603
  Receipt Date: 20130603
  Transmission Date: 20140414
  Serious: No
  Sender: FDA-Public Use
  Company Number: US-009507513-1305USA017555

PATIENT
  Age: 42 Year
  Sex: Male

DRUGS (2)
  1. LIPTRUZET [Suspect]
     Indication: HYPERCHOLESTEROLAEMIA
     Dosage: 10/40 MG, QD
     Route: 048
  2. SYNTHROID [Concomitant]

REACTIONS (1)
  - Myalgia [Recovered/Resolved]
